APPROVED DRUG PRODUCT: DEXAMETHASONE
Active Ingredient: DEXAMETHASONE
Strength: 0.5MG/5ML
Dosage Form/Route: ELIXIR;ORAL
Application: A090891 | Product #001 | TE Code: AA
Applicant: RISING PHARMA HOLDINGS INC
Approved: Jul 12, 2011 | RLD: No | RS: No | Type: RX